FAERS Safety Report 17848488 (Version 1)
Quarter: 2020Q2

REPORT INFORMATION
  Report Type: Spontaneous
  Country: US (occurrence: US)
  Receive Date: 20200602
  Receipt Date: 20200602
  Transmission Date: 20200714
  Serious: Yes (Other)
  Sender: FDA-Public Use
  Company Number: US-GW PHARMA-202005USGW01923

PATIENT

DRUGS (3)
  1. EPIDIOLEX [Suspect]
     Active Substance: CANNABIDIOL
     Dosage: UNK, DOSE INCREASED
     Route: 048
     Dates: start: 202002, end: 2020
  2. EPIDIOLEX [Suspect]
     Active Substance: CANNABIDIOL
     Dosage: UNK, DOSE DECREASED
     Route: 048
     Dates: start: 2020
  3. EPIDIOLEX [Suspect]
     Active Substance: CANNABIDIOL
     Indication: PRODUCT USED FOR UNKNOWN INDICATION
     Dosage: 1100 MILLIGRAM, BID
     Route: 048
     Dates: start: 201902, end: 2020

REACTIONS (3)
  - Atonic seizures [Unknown]
  - Fall [Unknown]
  - Seizure [Unknown]

NARRATIVE: CASE EVENT DATE: 202002
